FAERS Safety Report 6121676-7 (Version None)
Quarter: 2009Q1

REPORT INFORMATION
  Report Type: 
  Country: None (occurrence: None)
  Receive Date: 20090317
  Receipt Date: 20090304
  Transmission Date: 20090719
  Serious: Yes (Hospitalization)
  Sender: FDA-Public Use
  Company Number: FR-SANOFI-SYNTHELABO-A02200900594

PATIENT
  Age: 80 Year
  Sex: Female

DRUGS (5)
  1. COLCHIMAX [Interacting]
     Indication: ARTHRITIS
     Dosage: UNK
     Route: 048
     Dates: start: 20090102, end: 20090112
  2. COLCHIMAX [Interacting]
     Dosage: UNK
     Route: 048
     Dates: start: 20090113, end: 20090113
  3. COUMADIN [Interacting]
     Indication: DRUG USE FOR UNKNOWN INDICATION
     Dosage: UNK
     Route: 048
     Dates: start: 20090105, end: 20090110
  4. ARIXTRA [Interacting]
     Indication: PULMONARY EMBOLISM
     Route: 058
     Dates: start: 20081231, end: 20090109
  5. PLAVIX [Suspect]
     Indication: DRUG USE FOR UNKNOWN INDICATION
     Dosage: UNK
     Route: 048
     Dates: end: 20090110

REACTIONS (3)
  - DRUG INTERACTION [None]
  - MUSCLE HAEMORRHAGE [None]
  - SHOCK HAEMORRHAGIC [None]
